FAERS Safety Report 5055336-0 (Version None)
Quarter: 2006Q3

REPORT INFORMATION
  Report Type: 
  Country: None (occurrence: None)
  Receive Date: 20060714
  Receipt Date: 20060627
  Transmission Date: 20061208
  Serious: Yes (Hospitalization)
  Sender: FDA-Public Use
  Company Number: SI200604002964

PATIENT
  Age: 16 Year
  Sex: Female

DRUGS (5)
  1. ZYPREXA [Suspect]
     Indication: SOMATOFORM DISORDER
     Dosage: 5 MG, UNKNOWN; ORAL
     Route: 048
     Dates: start: 20050801
  2. SANDIMMUN NEORAL /SWE/ (CICLOSPORIN) [Concomitant]
  3. MYCOPHENOLIC ACID [Concomitant]
  4. ALDIZEM (DILTIAZEM) [Concomitant]
  5. RANITAL (RANITIDINE) [Concomitant]

REACTIONS (2)
  - KIDNEY TRANSPLANT REJECTION [None]
  - RENAL FAILURE [None]
